FAERS Safety Report 8296445 (Version 2)
Quarter: 2012Q4

REPORT INFORMATION
  Report Type: 
  Country: US (occurrence: US)
  Receive Date: 20111216
  Receipt Date: 20121218
  Transmission Date: 20130627
  Serious: No
  Sender: FDA-Public Use
  Company Number: US-BRISTOL-MYERS SQUIBB COMPANY-15658362

PATIENT
  Age: 61 Year
  Sex: Male
  Weight: 94 kg

DRUGS (6)
  1. ABILIFY [Suspect]
     Indication: SCHIZOPHRENIA, PARANOID TYPE
     Dosage: Reduced to 7.5mg
     Route: 048
     Dates: start: 20091217, end: 20111005
  2. REQUIP [Suspect]
     Dates: start: 20091217
  3. COGENTIN [Concomitant]
  4. CLONAZEPAM [Concomitant]
  5. ROPINIROLE [Concomitant]
  6. TYLENOL [Concomitant]

REACTIONS (6)
  - Muscle tightness [Not Recovered/Not Resolved]
  - Muscle spasms [Unknown]
  - Irregular sleep phase [Recovering/Resolving]
  - Rib fracture [Unknown]
  - Arthropathy [Recovering/Resolving]
  - Blood creatine phosphokinase increased [Recovered/Resolved]
